FAERS Safety Report 24121818 (Version 3)
Quarter: 2025Q1

REPORT INFORMATION
  Report Type: Spontaneous
  Country: US (occurrence: US)
  Receive Date: 20240722
  Receipt Date: 20250115
  Transmission Date: 20250408
  Serious: No
  Sender: SANOFI AVENTIS
  Company Number: US-SANOFI-02137252

PATIENT
  Age: 75 Year
  Sex: Female

DRUGS (4)
  1. TOUJEO [Suspect]
     Active Substance: INSULIN GLARGINE
     Indication: Type 2 diabetes mellitus
     Dosage: 14 IU, QD
     Dates: start: 20240621, end: 20240715
  2. TOUJEO [Suspect]
     Active Substance: INSULIN GLARGINE
     Dosage: 12 IU, QD
     Dates: start: 20240715
  3. TOUJEO [Suspect]
     Active Substance: INSULIN GLARGINE
     Dosage: 15 IU, QD
  4. NOVOLOG [Concomitant]
     Active Substance: INSULIN ASPART

REACTIONS (6)
  - Blood glucose fluctuation [Unknown]
  - Tremor [Unknown]
  - Vision blurred [Unknown]
  - Blood glucose increased [Unknown]
  - Intentional product misuse [Unknown]
  - Product storage error [Unknown]

NARRATIVE: CASE EVENT DATE: 20240701
